FAERS Safety Report 13784082 (Version 1)
Quarter: 2017Q3

REPORT INFORMATION
  Report Type: Spontaneous
  Country: FR (occurrence: FR)
  Receive Date: 20170724
  Receipt Date: 20170724
  Transmission Date: 20171127
  Serious: Yes (Hospitalization)
  Sender: FDA-Public Use
  Company Number: FR-PFIZER INC-605383

PATIENT
  Age: 73 Year
  Sex: Female

DRUGS (18)
  1. BETADINE [Suspect]
     Active Substance: POVIDONE-IODINE
     Dosage: UNK
     Route: 067
     Dates: start: 20100420, end: 20100420
  2. NEURONTIN [Suspect]
     Active Substance: GABAPENTIN
     Indication: PREMEDICATION
     Dosage: 900 MG THE DAY AND 600 MG 2 H BEFORE SURGERY
     Route: 048
     Dates: start: 20100419, end: 20100420
  3. ULTIVA [Suspect]
     Active Substance: REMIFENTANIL HYDROCHLORIDE
     Indication: ANAESTHESIA PROCEDURE
     Dosage: DAY
     Route: 042
     Dates: start: 20100420, end: 20100420
  4. CALCIUM CHLORIDE. [Suspect]
     Active Substance: CALCIUM CHLORIDE
     Indication: ANAESTHESIA PROCEDURE
     Dosage: 2 G, UNK
     Route: 042
     Dates: start: 20100420, end: 20100420
  5. NORMACOL [Suspect]
     Active Substance: HERBALS\KARAYA GUM
     Indication: PREMEDICATION
     Dosage: SINGLE USE
     Route: 054
     Dates: start: 20100419, end: 20100419
  6. LOVENOX [Suspect]
     Active Substance: ENOXAPARIN SODIUM
     Indication: PREMEDICATION
     Dosage: 0.4 ML, UNK
     Route: 058
     Dates: start: 20100419, end: 20100420
  7. LACTATED RINGERS [Concomitant]
     Active Substance: CALCIUM CHLORIDE\POTASSIUM CHLORIDE\SODIUM CHLORIDE\SODIUM LACTATE
     Indication: PRODUCT USED FOR UNKNOWN INDICATION
     Dosage: UNK
  8. BETADINE [Suspect]
     Active Substance: POVIDONE-IODINE
     Indication: PREOPERATIVE CARE
     Dosage: SINGLE DOSE
     Route: 003
     Dates: start: 20100419, end: 20100420
  9. COTAREG [Concomitant]
     Active Substance: HYDROCHLOROTHIAZIDE\VALSARTAN
     Indication: PRODUCT USED FOR UNKNOWN INDICATION
     Dosage: UNK
  10. PROPOFOL FRESENIUS [Suspect]
     Active Substance: PROPOFOL
     Indication: ANAESTHESIA PROCEDURE
     Dosage: DAY
     Route: 042
     Dates: start: 20100420, end: 20100420
  11. ATRACURIUM BESILATE [Suspect]
     Active Substance: ATRACURIUM BESYLATE
     Indication: ANAESTHESIA PROCEDURE
     Dosage: UNK
     Route: 042
     Dates: start: 20100420, end: 20100420
  12. AUGMENTIN [Suspect]
     Active Substance: AMOXICILLIN\CLAVULANATE POTASSIUM
     Indication: ANAESTHESIA PROCEDURE
     Dosage: 3 G, DAY
     Route: 042
     Dates: start: 20100420, end: 20100420
  13. GENTAMICINE PANPHARMA [Suspect]
     Active Substance: GENTAMICIN
     Indication: ANAESTHESIA PROCEDURE
     Dosage: 240 MG, 1 DAY
     Route: 042
     Dates: start: 20100420, end: 20100420
  14. KETAMINE PANPHARMA [Suspect]
     Active Substance: KETAMINE
     Indication: ANAESTHESIA PROCEDURE
     Dosage: DAY
     Route: 042
     Dates: start: 20100420, end: 20100420
  15. LEVOTHYROX [Concomitant]
     Active Substance: LEVOTHYROXINE
     Indication: PRODUCT USED FOR UNKNOWN INDICATION
     Dosage: UNK
  16. SALINE /00075401/ [Concomitant]
     Active Substance: SODIUM CHLORIDE
     Indication: PRODUCT USED FOR UNKNOWN INDICATION
     Dosage: UNK
  17. NAROPEINE [Suspect]
     Active Substance: ROPIVACAINE HYDROCHLORIDE
     Indication: ANAESTHESIA PROCEDURE
     Dosage: DAY; LUMBAR INFUSION
     Route: 050
     Dates: start: 20100420, end: 20100420
  18. OPHTIM [Concomitant]
     Active Substance: TIMOLOL MALEATE
     Indication: PRODUCT USED FOR UNKNOWN INDICATION

REACTIONS (4)
  - Haematuria [Recovered/Resolved]
  - Oliguria [Recovered/Resolved]
  - Acute kidney injury [Recovered/Resolved]
  - Lymphopenia [Recovered/Resolved]

NARRATIVE: CASE EVENT DATE: 20100421
